FAERS Safety Report 20697710 (Version 2)
Quarter: 2022Q2

REPORT INFORMATION
  Report Type: Spontaneous
  Country: US (occurrence: US)
  Receive Date: 20220411
  Receipt Date: 20220505
  Transmission Date: 20220720
  Serious: No
  Sender: FDA-Public Use
  Company Number: US-JNJFOC-20220405077

PATIENT
  Age: 22 Month
  Sex: Male

DRUGS (1)
  1. ZYRTEC [Suspect]
     Active Substance: CETIRIZINE HYDROCHLORIDE
     Indication: Accidental exposure to product
     Dosage: SEVERAL TABLETS
     Route: 048
     Dates: start: 20220402

REACTIONS (5)
  - Vomiting [Unknown]
  - Lethargy [Unknown]
  - Accidental overdose [Unknown]
  - Accidental exposure to product [Unknown]
  - Failure of child resistant product closure [Unknown]

NARRATIVE: CASE EVENT DATE: 20220402
